FAERS Safety Report 16341500 (Version 3)
Quarter: 2019Q4

REPORT INFORMATION
  Report Type: Spontaneous
  Country: US (occurrence: US)
  Receive Date: 20190522
  Receipt Date: 20191118
  Transmission Date: 20200122
  Serious: No
  Sender: FDA-Public Use
  Company Number: US-ROCHE-2262232

PATIENT
  Sex: Female

DRUGS (1)
  1. XOFLUZA [Suspect]
     Active Substance: BALOXAVIR MARBOXIL
     Indication: INFLUENZA
     Dosage: 2 TABLETS AT THE SAME TIME ;ONGOING: NO
     Route: 065

REACTIONS (3)
  - Product dose omission [Unknown]
  - Product packaging issue [Unknown]
  - Malaise [Not Recovered/Not Resolved]
